FAERS Safety Report 11892116 (Version 45)
Quarter: 2018Q2

REPORT INFORMATION
  Report Type: Report from Study
  Country: CA (occurrence: CA)
  Receive Date: 20160106
  Receipt Date: 20180626
  Transmission Date: 20180711
  Serious: Yes (Hospitalization, Other)
  Sender: FDA-Public Use
  Company Number: CA-SA-2015SA077242

PATIENT
  Age: 36 Year
  Sex: Female
  Weight: 64 kg

DRUGS (20)
  1. METHYLPREDNISOLONE. [Concomitant]
     Active Substance: METHYLPREDNISOLONE
     Indication: PREMEDICATION
     Dosage: 1 G,QD
     Route: 042
     Dates: start: 20150525
  2. CYCLOBENZAPRINE. [Concomitant]
     Active Substance: CYCLOBENZAPRINE
     Dosage: UNK UNK,UNK
     Route: 065
  3. ACETAMINOPHEN. [Concomitant]
     Active Substance: ACETAMINOPHEN
     Indication: PYREXIA
  4. LAMICTAL [Concomitant]
     Active Substance: LAMOTRIGINE
     Dosage: UNK UNK,UNK
     Route: 065
  5. BACLOFEN. [Concomitant]
     Active Substance: BACLOFEN
     Dosage: UNK UNK,UNK
     Route: 065
  6. ACETAMINOPHEN. [Concomitant]
     Active Substance: ACETAMINOPHEN
     Indication: PAIN
     Dosage: 650 MG,PRN
     Route: 048
     Dates: start: 20150525
  7. ALEMTUZUMAB [Suspect]
     Active Substance: ALEMTUZUMAB
     Dosage: 12 MG,QD
     Route: 041
     Dates: start: 20150525, end: 20150527
  8. DIMENHYDRINATE. [Concomitant]
     Active Substance: DIMENHYDRINATE
     Indication: NAUSEA
  9. FAMPYRA [Concomitant]
     Active Substance: DALFAMPRIDINE
     Dosage: UNK UNK,UNK
     Route: 065
  10. RANITIDINE. [Concomitant]
     Active Substance: RANITIDINE
     Indication: GASTRIC DISORDER
  11. CITALOPRAM HYDROBROMIDE. [Concomitant]
     Active Substance: CITALOPRAM HYDROBROMIDE
     Dosage: UNK UNK,UNK
     Route: 065
  12. DIMENHYDRINATE. [Concomitant]
     Active Substance: DIMENHYDRINATE
     Indication: PREMEDICATION
     Dosage: 50 MG,UNK
     Route: 048
     Dates: start: 20150525
  13. DIPHENHYDRAMINE. [Concomitant]
     Active Substance: DIPHENHYDRAMINE
     Indication: PREMEDICATION
     Dosage: 50 MG,UNK
     Route: 048
     Dates: start: 20150525
  14. DIPHENHYDRAMINE. [Concomitant]
     Active Substance: DIPHENHYDRAMINE
     Indication: HYPERSENSITIVITY
  15. LYRICA [Concomitant]
     Active Substance: PREGABALIN
     Dosage: UNK UNK,UNK
     Route: 065
  16. ACICLOVIR [Concomitant]
     Active Substance: ACYCLOVIR
     Indication: PREMEDICATION
     Dosage: 300 MG,UNK
     Route: 048
     Dates: start: 20150525
  17. RANITIDINE. [Concomitant]
     Active Substance: RANITIDINE
     Indication: PREMEDICATION
     Dosage: 150 MG,BID
     Route: 048
     Dates: start: 20150525
  18. ACETAMINOPHEN. [Concomitant]
     Active Substance: ACETAMINOPHEN
     Indication: PREMEDICATION
     Dosage: 1000 MG,UNK
     Route: 048
     Dates: start: 20150525
  19. SYNTHROID [Concomitant]
     Active Substance: LEVOTHYROXINE SODIUM
     Indication: HYPOTHYROIDISM
     Dosage: .075 MG,UNK
     Route: 048
     Dates: start: 201503, end: 2016
  20. AMITRIPTYLINE HYDROCHLORIDE. [Concomitant]
     Active Substance: AMITRIPTYLINE HYDROCHLORIDE
     Dosage: UNK UNK,UNK
     Route: 065

REACTIONS (47)
  - Neutrophil percentage increased [Recovered/Resolved]
  - Headache [Recovered/Resolved]
  - White blood cell count decreased [Not Recovered/Not Resolved]
  - Chromaturia [Unknown]
  - Expired product administered [Unknown]
  - Skin discolouration [Recovering/Resolving]
  - Angina bullosa haemorrhagica [Recovered/Resolved]
  - pH urine increased [Recovered/Resolved]
  - White blood cells urine positive [Recovered/Resolved]
  - Urine abnormality [Recovered/Resolved]
  - Neutrophil count increased [Recovered/Resolved]
  - Nausea [Unknown]
  - Urine ketone body present [Recovered/Resolved]
  - Muscular weakness [Recovering/Resolving]
  - Blood creatinine increased [Recovered/Resolved]
  - Monocyte count decreased [Recovered/Resolved]
  - Neutrophil count decreased [Recovered/Resolved]
  - Neutrophil percentage decreased [Recovered/Resolved]
  - Polychromasia [Unknown]
  - Monocyte count increased [Recovered/Resolved]
  - Bacterial test [Not Recovered/Not Resolved]
  - Haematocrit decreased [Recovered/Resolved]
  - Red blood cell count decreased [Recovered/Resolved]
  - Monocyte percentage decreased [Not Recovered/Not Resolved]
  - Fatigue [Unknown]
  - Hospitalisation [Recovering/Resolving]
  - Myelocyte percentage increased [Unknown]
  - Urinary sediment present [Not Recovered/Not Resolved]
  - Lymphocyte percentage decreased [Not Recovered/Not Resolved]
  - Blood urine present [Recovered/Resolved]
  - Blood thyroid stimulating hormone increased [Recovered/Resolved]
  - Immune thrombocytopenic purpura [Not Recovered/Not Resolved]
  - Platelet count decreased [Recovered/Resolved]
  - Glucose urine present [Recovered/Resolved]
  - Platelet anisocytosis [Not Recovered/Not Resolved]
  - Granulocyte count increased [Recovered/Resolved]
  - Hypoaesthesia [Recovered/Resolved]
  - Red blood cells urine positive [Recovered/Resolved]
  - B-lymphocyte count decreased [Not Recovered/Not Resolved]
  - T-lymphocyte count decreased [Not Recovered/Not Resolved]
  - Punctate basophilia [Unknown]
  - Myelocyte count increased [Unknown]
  - Monocyte percentage increased [Not Recovered/Not Resolved]
  - Haemoglobin decreased [Recovered/Resolved]
  - Blood thyroid stimulating hormone decreased [Recovered/Resolved]
  - Granulocytes abnormal [Recovered/Resolved]
  - Lymphocyte count decreased [Not Recovered/Not Resolved]

NARRATIVE: CASE EVENT DATE: 201505
